FAERS Safety Report 6254507-5 (Version None)
Quarter: 2009Q2

REPORT INFORMATION
  Report Type: 
  Country: None (occurrence: None)
  Receive Date: 20090630
  Receipt Date: 20090106
  Transmission Date: 20091009
  Serious: Yes (Other)
  Sender: FDA-Public Use
  Company Number: US-SEPTODONT-200900038

PATIENT
  Sex: Female
  Weight: 136 kg

DRUGS (6)
  1. ARTICAINE HYDROCHLORIDE WITH EPINEPHRINE 1:100000 [Suspect]
     Indication: LOCAL ANAESTHESIA
     Dosage: DENTAL
     Route: 004
     Dates: start: 20070816, end: 20070816
  2. WELLBUTRIN [Concomitant]
  3. AVALIDE [Concomitant]
  4. ALLEGRA [Concomitant]
  5. FLONASE [Concomitant]
  6. ORTHO EVRA (ESTROGEN NOS) [Concomitant]

REACTIONS (7)
  - BURNING SENSATION [None]
  - HYPOAESTHESIA ORAL [None]
  - HYPOGEUSIA [None]
  - NERVE INJURY [None]
  - PARAESTHESIA [None]
  - SPEECH DISORDER [None]
  - SWOLLEN TONGUE [None]
